FAERS Safety Report 24722563 (Version 2)
Quarter: 2024Q4

REPORT INFORMATION
  Report Type: Spontaneous
  Country: FR (occurrence: FR)
  Receive Date: 20241211
  Receipt Date: 20241227
  Transmission Date: 20250114
  Serious: Yes (Death, Other)
  Sender: SANOFI AVENTIS
  Company Number: FR-SA-2024SA366041

PATIENT
  Age: 73 Year
  Sex: Female
  Weight: 63.1 kg

DRUGS (1)
  1. ALGLUCOSIDASE ALFA [Suspect]
     Active Substance: ALGLUCOSIDASE ALFA
     Indication: Glycogen storage disease type II
     Dosage: 20 MG/KG, QOW
     Route: 065
     Dates: start: 20240610, end: 2024

REACTIONS (3)
  - Disease progression [Fatal]
  - Pneumonia [Fatal]
  - Dyspnoea at rest [Not Recovered/Not Resolved]

NARRATIVE: CASE EVENT DATE: 20240101
